FAERS Safety Report 21762779 (Version 2)
Quarter: 2023Q1

REPORT INFORMATION
  Report Type: Spontaneous
  Country: JP (occurrence: JP)
  Receive Date: 20221221
  Receipt Date: 20230123
  Transmission Date: 20230418
  Serious: Yes (Hospitalization, Other)
  Sender: FDA-Public Use
  Company Number: JP-BAYER-2022A140304

PATIENT
  Age: 61 Year
  Sex: Female
  Weight: 64 kg

DRUGS (3)
  1. STIVARGA [Suspect]
     Active Substance: REGORAFENIB
     Indication: Colon cancer
     Dosage: DAILY DOSE 160 MG
     Route: 048
     Dates: start: 20220516, end: 20220605
  2. ETIZOLAM [Concomitant]
     Active Substance: ETIZOLAM
     Dosage: 2, 3 TABLETS/DAY
     Route: 048
     Dates: end: 20220620
  3. BROTIZOLAM [Concomitant]
     Active Substance: BROTIZOLAM
     Dosage: 1 OR 2 TABLETS/DAY
     Route: 048
     Dates: end: 20220620

REACTIONS (12)
  - Drug-induced liver injury [Recovered/Resolved]
  - Metastases to liver [None]
  - Rash erythematous [Recovering/Resolving]
  - Pleural effusion [Unknown]
  - Decreased appetite [Recovering/Resolving]
  - Malaise [Recovered/Resolved]
  - Cough [Recovering/Resolving]
  - Hepatic calcification [None]
  - Hepatic mass [None]
  - Aspartate aminotransferase increased [Recovered/Resolved]
  - Alanine aminotransferase increased [Recovered/Resolved]
  - Blood bilirubin increased [Recovered/Resolved]

NARRATIVE: CASE EVENT DATE: 20220516
